FAERS Safety Report 25758112 (Version 1)
Quarter: 2025Q3

REPORT INFORMATION
  Report Type: Spontaneous
  Country: US (occurrence: US)
  Receive Date: 20250903
  Receipt Date: 20250903
  Transmission Date: 20251020
  Serious: No
  Sender: CIPLA
  Company Number: US-CIPLA LTD.-2024US09570

PATIENT

DRUGS (4)
  1. DICLOFENAC [Suspect]
     Active Substance: DICLOFENAC
     Indication: Osteoarthritis
     Route: 061
     Dates: start: 20240523
  2. DICLOFENAC [Suspect]
     Active Substance: DICLOFENAC
     Indication: Sciatica
     Route: 061
     Dates: start: 20240523
  3. DICLOFENAC [Suspect]
     Active Substance: DICLOFENAC
     Route: 061
     Dates: start: 20240523
  4. DICLOFENAC [Concomitant]
     Active Substance: DICLOFENAC
     Indication: Product used for unknown indication
     Route: 061
     Dates: start: 20230523

REACTIONS (7)
  - Off label use [Unknown]
  - Product with quality issue administered [Unknown]
  - Product use complaint [Unknown]
  - Product container issue [Unknown]
  - Product container seal issue [Unknown]
  - Product substitution issue [Unknown]
  - Wrong technique in product usage process [Unknown]

NARRATIVE: CASE EVENT DATE: 20240101
